FAERS Safety Report 12289648 (Version 1)
Quarter: 2016Q2

REPORT INFORMATION
  Report Type: Spontaneous
  Country: US (occurrence: None)
  Receive Date: 20160420
  Receipt Date: 20160420
  Transmission Date: 20160815
  Serious: No
  Sender: FDA-Public Use
  Company Number: None

PATIENT
  Age: 55 Year
  Sex: Female

DRUGS (1)
  1. CAPECITABINE 500MG TEVA PHARMACEUTICALS USA INC [Suspect]
     Active Substance: CAPECITABINE
     Indication: NEOPLASM MALIGNANT
     Dosage: 1500MG IN A.M 2000 IN P.M DAILY FOR 14 DAYS ORAL
     Route: 048
     Dates: start: 20151104

REACTIONS (1)
  - Neuropathy peripheral [None]

NARRATIVE: CASE EVENT DATE: 20151104
